FAERS Safety Report 7706845-4 (Version None)
Quarter: 2011Q3

REPORT INFORMATION
  Report Type: 
  Country: None (occurrence: None)
  Receive Date: 20110824
  Receipt Date: 20110810
  Transmission Date: 20111222
  Serious: Yes (Death, Hospitalization)
  Sender: FDA-Public Use
  Company Number: US-GLAXOSMITHKLINE-A0834596A

PATIENT
  Age: 58 Year
  Sex: Male
  Weight: 133.2 kg

DRUGS (9)
  1. AVANDIA [Suspect]
     Indication: DIABETES MELLITUS
     Dosage: 8MG TWICE PER DAY
     Route: 048
     Dates: start: 20000101, end: 20031201
  2. INSULIN [Concomitant]
  3. PROVENTIL [Concomitant]
  4. ZESTRIL [Concomitant]
  5. GLUCOTROL [Concomitant]
  6. EFFEXOR [Concomitant]
  7. VIOXX [Concomitant]
  8. LOPID [Concomitant]
  9. ADVAIR DISKUS 100/50 [Concomitant]

REACTIONS (7)
  - VENTRICULAR TACHYCARDIA [None]
  - RENAL FAILURE [None]
  - VENTRICULAR FIBRILLATION [None]
  - MYOCARDIAL INFARCTION [None]
  - HYPERTENSION [None]
  - HYPOTENSION [None]
  - CARDIAC FAILURE CONGESTIVE [None]
